FAERS Safety Report 8913374 (Version 1)
Quarter: 2012Q4

REPORT INFORMATION
  Report Type: 
  Country: SE (occurrence: SE)
  Receive Date: 20121116
  Receipt Date: 20121116
  Transmission Date: 20130627
  Serious: Yes (Hospitalization)
  Sender: FDA-Public Use
  Company Number: SE-PFIZER INC-2012283459

PATIENT
  Age: 63 Year
  Sex: Male
  Weight: 61 kg

DRUGS (4)
  1. GENOTROPIN [Suspect]
     Indication: GROWTH HORMONE DEFICIENCY
     Dosage: 0.3 mg, 1x/day, 7 injections/week
     Route: 058
     Dates: start: 20090508
  2. LEVOTHYROXINE [Concomitant]
     Indication: TSH DECREASED
     Dosage: UNK
     Dates: start: 19940101
  3. LEVOTHYROXINE [Concomitant]
     Indication: PRIMARY HYPOTHYROIDISM
  4. TESTOSTERONE [Concomitant]
     Indication: HYPOGONADISM
     Dosage: UNK
     Dates: start: 20090508

REACTIONS (1)
  - Gastric disorder [Unknown]
